FAERS Safety Report 6814622-1 (Version None)
Quarter: 2010Q3

REPORT INFORMATION
  Report Type: 
  Country: None (occurrence: None)
  Receive Date: 20100702
  Receipt Date: 20100624
  Transmission Date: 20110219
  Serious: Yes (Other)
  Sender: FDA-Public Use
  Company Number: US-PFIZER INC-2010079795

PATIENT
  Sex: Female
  Weight: 79.365 kg

DRUGS (4)
  1. DETROL LA [Suspect]
     Indication: BLADDER DISORDER
     Dosage: UNK
     Route: 048
     Dates: start: 20020101, end: 20090101
  2. OXYBUTYNIN [Suspect]
     Indication: BLADDER DISORDER
     Dosage: UNKNOWN DOSE TWICE A DAY
  3. IRON [Concomitant]
     Dosage: UNK
  4. VITAMIN E [Concomitant]
     Dosage: UNK

REACTIONS (3)
  - DRUG INEFFECTIVE [None]
  - GAIT DISTURBANCE [None]
  - INTERVERTEBRAL DISC DISPLACEMENT [None]
